FAERS Safety Report 5234225-2 (Version None)
Quarter: 2007Q1

REPORT INFORMATION
  Report Type: 
  Country: None (occurrence: None)
  Receive Date: 20070209
  Receipt Date: 20070206
  Transmission Date: 20070707
  Serious: Yes (Life-Threatening)
  Sender: FDA-Public Use
  Company Number: PHRM2007FR00726

PATIENT
  Age: 28 Year
  Sex: Female

DRUGS (1)
  1. SYNTOCINON [Suspect]
     Indication: CAESAREAN SECTION
     Dosage: UNK, UNK
     Dates: start: 20070116, end: 20070116

REACTIONS (5)
  - ACUTE PULMONARY OEDEMA [None]
  - BRADYCARDIA [None]
  - EXTRASYSTOLES [None]
  - HYPERTENSION [None]
  - MALAISE [None]
